FAERS Safety Report 5673551-X (Version None)
Quarter: 2008Q1

REPORT INFORMATION
  Report Type: 
  Country: None (occurrence: None)
  Receive Date: 20080319
  Receipt Date: 20080222
  Transmission Date: 20080703
  Serious: No
  Sender: FDA-Public Use
  Company Number: US-BOEHRINGER INGELHEIM GMBH, GERMANY-2008-BP-04014BP

PATIENT

DRUGS (2)
  1. MIRAPEX [Suspect]
     Indication: RESTLESS LEGS SYNDROME
  2. ROPINIROLE HCL [Suspect]
     Indication: RESTLESS LEGS SYNDROME

REACTIONS (1)
  - DRUG EFFECT DECREASED [None]
